FAERS Safety Report 7340192-8 (Version None)
Quarter: 2011Q1

REPORT INFORMATION
  Report Type: 
  Country: None (occurrence: None)
  Receive Date: 20110309
  Receipt Date: 20110303
  Transmission Date: 20110831
  Serious: Yes (Other)
  Sender: FDA-Public Use
  Company Number: IE-BRISTOL-MYERS SQUIBB COMPANY-15005689

PATIENT
  Age: 20 Year
  Sex: Female
  Weight: 86 kg

DRUGS (4)
  1. ATAZANAVIR [Suspect]
     Indication: HIV INFECTION
     Route: 048
     Dates: start: 20070605, end: 20070827
  2. NORVIR [Suspect]
     Dates: start: 20070605
  3. LOPINAVIR [Suspect]
     Indication: HIV INFECTION
     Dosage: 1 DF = 2 TABS
     Route: 048
     Dates: start: 20070605, end: 20070827
  4. COMBIVIR [Suspect]
     Indication: HIV INFECTION
     Dosage: 1 DF = 1 TABS
     Route: 048
     Dates: start: 20070606, end: 20070827

REACTIONS (3)
  - NORMAL NEWBORN [None]
  - CAESAREAN SECTION [None]
  - PREGNANCY [None]
